FAERS Safety Report 17559712 (Version 4)
Quarter: 2020Q3

REPORT INFORMATION
  Report Type: Report from Study
  Country: US (occurrence: US)
  Receive Date: 20200319
  Receipt Date: 20200723
  Transmission Date: 20201102
  Serious: No
  Sender: FDA-Public Use
  Company Number: US-SA-2020SA070106

PATIENT

DRUGS (2)
  1. DUPILUMAB [Suspect]
     Active Substance: DUPILUMAB
     Dosage: 300 MG, QOW
     Route: 058
     Dates: start: 202002
  2. DUPILUMAB [Suspect]
     Active Substance: DUPILUMAB
     Dosage: UNK, 1X, LOADING DOSE

REACTIONS (5)
  - Headache [Unknown]
  - Pruritus [Unknown]
  - Fatigue [Unknown]
  - Tinea infection [Unknown]
  - Feeling abnormal [Unknown]

NARRATIVE: CASE EVENT DATE: 2020
